FAERS Safety Report 5849398-8 (Version None)
Quarter: 2008Q3

REPORT INFORMATION
  Report Type: 
  Country: None (occurrence: None)
  Receive Date: 20080815
  Receipt Date: 20080805
  Transmission Date: 20090109
  Serious: Yes (Other)
  Sender: FDA-Public Use
  Company Number: CIP08001172

PATIENT
  Age: 69 Year
  Sex: Female
  Weight: 69.8 kg

DRUGS (6)
  1. ACTONEL [Suspect]
     Indication: OSTEOPENIA
     Dosage: 35 MG ONCE WEEKLY, ORAL
     Route: 048
     Dates: start: 20070814
  2. EVISTA [Concomitant]
  3. RESTORIL /0054301/ (CHLORMEZANONE) [Concomitant]
  4. DOXYFENE (PARACETAMOL, DEXTROPROPOXYPHENE HYDROCHLORIDE) [Concomitant]
  5. SEROQUEL [Concomitant]
  6. CALCIUM (CALCIUM) [Concomitant]

REACTIONS (3)
  - EYE DISORDER [None]
  - GASTRIC DISORDER [None]
  - RETINAL HAEMORRHAGE [None]
